FAERS Safety Report 16017685 (Version 1)
Quarter: 2019Q1

REPORT INFORMATION
  Report Type: Spontaneous
  Country: US (occurrence: US)
  Receive Date: 20190228
  Receipt Date: 20190228
  Transmission Date: 20190418
  Serious: No
  Sender: FDA-Public Use
  Company Number: US-ABBVIE-19S-163-2613007-00

PATIENT
  Age: 19 Year
  Sex: Male

DRUGS (3)
  1. TESTOSTERONE. [Suspect]
     Active Substance: TESTOSTERONE
     Indication: HYPOGONADISM
     Route: 030
  2. ANDROGEL [Suspect]
     Active Substance: TESTOSTERONE
     Indication: HYPOGONADISM
     Route: 061
     Dates: start: 2015, end: 20160122
  3. DULOXETINE. [Concomitant]
     Active Substance: DULOXETINE
     Indication: DEPRESSION

REACTIONS (9)
  - Inflammation [Unknown]
  - Autoimmune disorder [Unknown]
  - Depression [Not Recovered/Not Resolved]
  - Attention deficit/hyperactivity disorder [Unknown]
  - Withdrawal syndrome [Unknown]
  - Pain [Unknown]
  - Vitamin B12 decreased [Unknown]
  - Mental disorder [Unknown]
  - Unevaluable event [Unknown]

NARRATIVE: CASE EVENT DATE: 2015
